FAERS Safety Report 4755433-0 (Version None)
Quarter: 2005Q3

REPORT INFORMATION
  Report Type: 
  Country: None (occurrence: None)
  Receive Date: 20050826
  Receipt Date: 20050826
  Transmission Date: 20060218
  Serious: Yes (Hospitalization)
  Sender: FDA-Public Use
  Company Number: None

PATIENT
  Age: 71 Year
  Sex: Female
  Weight: 50.8029 kg

DRUGS (12)
  1. AVASTIN [Suspect]
     Indication: CHEMOTHERAPY
     Dosage: 509.10 MG
     Dates: start: 20050310, end: 20050425
  2. AVASTIN [Suspect]
     Indication: PANCREATIC CARCINOMA
     Dosage: 509.10 MG
     Dates: start: 20050310, end: 20050425
  3. TAXOTERE [Suspect]
     Indication: PANCREATIC CARCINOMA
     Dosage: 54.60 MG
     Dates: start: 20050310, end: 20050414
  4. SYNTHROID [Concomitant]
  5. COSOPT [Concomitant]
  6. PROTONIX [Concomitant]
  7. AMBIEN [Concomitant]
  8. PANCREATIC ENZYMES [Concomitant]
  9. OXYCONTIN [Concomitant]
  10. OXYCODONE [Concomitant]
  11. SENOKOT [Concomitant]
  12. COLACE [Concomitant]

REACTIONS (18)
  - ALANINE AMINOTRANSFERASE INCREASED [None]
  - ANOREXIA [None]
  - ASPARTATE AMINOTRANSFERASE INCREASED [None]
  - BLOOD ALKALINE PHOSPHATASE INCREASED [None]
  - BLOOD BILIRUBIN INCREASED [None]
  - CHILLS [None]
  - DEHYDRATION [None]
  - DISEASE PROGRESSION [None]
  - FATIGUE [None]
  - HAEMOGLOBIN DECREASED [None]
  - LIVER ABSCESS [None]
  - LIVER DISORDER [None]
  - NAUSEA [None]
  - PERITONITIS BACTERIAL [None]
  - RECTAL HAEMORRHAGE [None]
  - THROMBOSIS [None]
  - TREMOR [None]
  - WHITE BLOOD CELL COUNT INCREASED [None]
